FAERS Safety Report 4845896-4 (Version None)
Quarter: 2005Q4

REPORT INFORMATION
  Report Type: 
  Country: None (occurrence: None)
  Receive Date: 20051206
  Receipt Date: 20051129
  Transmission Date: 20060501
  Serious: Yes (Death, Other)
  Sender: FDA-Public Use
  Company Number: IT-AVENTIS-200520540GDDC

PATIENT
  Sex: Male

DRUGS (1)
  1. RIFADIN [Suspect]

REACTIONS (6)
  - ANAEMIA [None]
  - DEATH [None]
  - GENERALISED OEDEMA [None]
  - HYDROTHORAX [None]
  - RENAL FAILURE ACUTE [None]
  - THROMBOCYTOPENIA [None]
